FAERS Safety Report 25115961 (Version 3)
Quarter: 2025Q2

REPORT INFORMATION
  Report Type: Report from Study
  Country: US (occurrence: US)
  Receive Date: 20250325
  Receipt Date: 20250519
  Transmission Date: 20250717
  Serious: Yes (Other)
  Sender: ABBVIE
  Company Number: US-ABBVIE-6190980

PATIENT
  Sex: Male

DRUGS (1)
  1. SKYRIZI [Suspect]
     Active Substance: RISANKIZUMAB-RZAA
     Indication: Psoriasis
     Route: 058

REACTIONS (11)
  - Toe operation [Not Recovered/Not Resolved]
  - Rash macular [Not Recovered/Not Resolved]
  - Psoriasis [Not Recovered/Not Resolved]
  - Atrioventricular block [Recovered/Resolved]
  - Pain in extremity [Not Recovered/Not Resolved]
  - Fall [Not Recovered/Not Resolved]
  - Diabetes mellitus [Recovered/Resolved]
  - Back disorder [Not Recovered/Not Resolved]
  - Arthropathy [Not Recovered/Not Resolved]
  - Musculoskeletal disorder [Unknown]
  - Cardiac disorder [Recovered/Resolved]
